FAERS Safety Report 10747697 (Version 1)
Quarter: 2015Q1

REPORT INFORMATION
  Report Type: Spontaneous
  Country: US (occurrence: None)
  Receive Date: 20150120
  Receipt Date: 20150120
  Transmission Date: 20150721
  Serious: No
  Sender: FDA-Public Use
  Company Number: AEGR000894

PATIENT
  Age: 58 Year
  Sex: Female
  Weight: 115.2 kg

DRUGS (14)
  1. LEVOTHYROXINE (LEVOTHYROXINE SODIUM) [Concomitant]
  2. WELCHOL (COLESEVELAM HYDROCHLORIDE) [Concomitant]
  3. CO Q10 (UBIDECARENONE) [Concomitant]
  4. STOOL SOFTENER (DOCUSATE SODIUM) [Concomitant]
     Active Substance: DOCUSATE SODIUM
  5. FOLBEE (CYANOCOBALAMIN, FOLIC  ACID, PYRIDOXINE HYDROCHLORIDE) [Concomitant]
     Active Substance: CYANOCOBALAMIN\FOLIC ACID\PYRIDOXINE HYDROCHLORIDE
  6. VITAMIN D3 (VITAMIN D3) [Concomitant]
  7. ASPIRIN (ACETYLSALICYLIC ACID) [Concomitant]
     Active Substance: ASPIRIN
  8. FAMOTIDINE (FAMOTIDINE) [Concomitant]
     Active Substance: FAMOTIDINE
  9. BIOTIN (BIOTIN) [Concomitant]
  10. JUXTAPID [Suspect]
     Active Substance: LOMITAPIDE MESYLATE
     Indication: TYPE IIA HYPERLIPIDAEMIA
     Route: 048
     Dates: start: 201410
  11. FLEXERIL [Concomitant]
     Active Substance: CYCLOBENZAPRINE HYDROCHLORIDE
  12. OMEGA 3 N(FISH OIL) [Concomitant]
  13. AMBIEN CR (ZOLPIDEM TARTRATE) [Concomitant]
  14. ZETIA [Concomitant]
     Active Substance: EZETIMIBE

REACTIONS (2)
  - Headache [None]
  - Nausea [None]

NARRATIVE: CASE EVENT DATE: 201410
